FAERS Safety Report 4330703-9 (Version None)
Quarter: 2004Q1

REPORT INFORMATION
  Report Type: 
  Country: None (occurrence: None)
  Receive Date: 20040329
  Receipt Date: 20040319
  Transmission Date: 20041129
  Serious: Yes (Hospitalization)
  Sender: FDA-Public Use
  Company Number: TCI2004A01143

PATIENT
  Age: 67 Year
  Sex: Male

DRUGS (6)
  1. PIOGLITAZONE HYDROCHLORIDE  (AC TOS) [Suspect]
     Indication: DIABETES MELLITUS NON-INSULIN-DEPENDENT
     Dosage: 30 MG (30 MG, 1 D), PER ORAL
     Route: 048
     Dates: start: 20030508, end: 20040319
  2. NORVASC [Concomitant]
  3. CETIRIZINE HCL [Concomitant]
  4. GLIMEPIRIDE [Concomitant]
  5. PIRENOXINE [Concomitant]
  6. ANTUP R (ISOSORBIDE DINITRATE) [Concomitant]

REACTIONS (2)
  - CAROTID ARTERY STENOSIS [None]
  - CEREBRAL INFARCTION [None]
